FAERS Safety Report 7499860-X (Version None)
Quarter: 2011Q2

REPORT INFORMATION
  Report Type: 
  Country: None (occurrence: None)
  Receive Date: 20110524
  Receipt Date: 20110516
  Transmission Date: 20111010
  Serious: Yes (Hospitalization, Other)
  Sender: FDA-Public Use
  Company Number: FR-NAPPMUNDI-GBR-2011-0008236

PATIENT
  Sex: Female

DRUGS (6)
  1. OXYCODONE HCL [Suspect]
     Dosage: 10 MG, BID
     Route: 048
     Dates: start: 20110307
  2. PAROXETINE HCL [Concomitant]
     Dosage: 20 MG, DAILY
     Route: 048
  3. LYRICA [Concomitant]
     Dosage: 200 MG, BID
     Route: 048
  4. OXYCODONE HCL [Suspect]
     Indication: PROCEDURAL PAIN
     Dosage: 100 MG, BID
     Route: 048
     Dates: end: 20110225
  5. LEVOTHYROXINE SODIUM [Concomitant]
     Dosage: 75 MCG, DAILY
     Route: 048
  6. ACETAMINOPHEN [Concomitant]
     Dosage: UNK, PRN

REACTIONS (10)
  - OVERDOSE [None]
  - RALES [None]
  - CHEST PAIN [None]
  - DYSPNOEA [None]
  - HYPOXIA [None]
  - PYREXIA [None]
  - RESPIRATORY DISORDER [None]
  - TACHYCARDIA [None]
  - COUGH [None]
  - PRODUCTIVE COUGH [None]
